FAERS Safety Report 21714646 (Version 1)
Quarter: 2022Q4

REPORT INFORMATION
  Report Type: Spontaneous
  Country: US (occurrence: None)
  Receive Date: 20221210
  Receipt Date: 20221210
  Transmission Date: 20230112
  Serious: Yes (Disabling)
  Sender: FDA-Public Use
  Company Number: None

PATIENT
  Age: 26 Year
  Sex: Male
  Weight: 58.5 kg

DRUGS (2)
  1. ANAFRANIL [Suspect]
     Active Substance: CLOMIPRAMINE HYDROCHLORIDE
     Indication: Depression
     Dosage: FREQUENCY : AT BEDTIME;?
     Route: 048
     Dates: start: 20200601, end: 20201201
  2. ANAFRANIL [Suspect]
     Active Substance: CLOMIPRAMINE HYDROCHLORIDE
     Indication: Anxiety

REACTIONS (12)
  - Anorgasmia [None]
  - Electric shock sensation [None]
  - Seizure [None]
  - Somnolence [None]
  - Drug ineffective [None]
  - Dry mouth [None]
  - Dental caries [None]
  - Irritable bowel syndrome [None]
  - Genital pain [None]
  - Genital disorder [None]
  - Emotional distress [None]
  - Libido decreased [None]

NARRATIVE: CASE EVENT DATE: 20201201
